FAERS Safety Report 4924279-2 (Version None)
Quarter: 2006Q1

REPORT INFORMATION
  Report Type: 
  Country: None (occurrence: None)
  Receive Date: 20060227
  Receipt Date: 20060216
  Transmission Date: 20060701
  Serious: Yes (Hospitalization)
  Sender: FDA-Public Use
  Company Number: BE-AVENTIS-200611422GDDC

PATIENT
  Age: 40 Year
  Sex: Female
  Weight: 53 kg

DRUGS (1)
  1. KETEK [Suspect]
     Indication: BRONCHITIS
     Dosage: DOSE: UNK
     Route: 048
     Dates: start: 20060101

REACTIONS (3)
  - BALANCE DISORDER [None]
  - MIGRAINE [None]
  - VISUAL DISTURBANCE [None]
